FAERS Safety Report 6380008-X (Version None)
Quarter: 2009Q3

REPORT INFORMATION
  Report Type: 
  Country: None (occurrence: None)
  Receive Date: 20090928
  Receipt Date: 20090917
  Transmission Date: 20100115
  Serious: Yes (Other)
  Sender: FDA-Public Use
  Company Number: US-ELI_LILLY_AND_COMPANY-US200909004209

PATIENT
  Sex: Female

DRUGS (6)
  1. STRATTERA [Suspect]
     Indication: ATTENTION DEFICIT/HYPERACTIVITY DISORDER
     Dosage: 40 MG, DAILY (1/D)
     Route: 065
     Dates: start: 20040101, end: 20040101
  2. STRATTERA [Suspect]
     Dosage: 80 MG, DAILY (1/D)
     Route: 065
     Dates: start: 20040101, end: 20040101
  3. STRATTERA [Suspect]
     Dosage: 40 MG, DAILY (1/D)
     Route: 065
     Dates: end: 20070101
  4. STRATTERA [Suspect]
     Dosage: 40 MG, DAILY (1/D)
     Dates: start: 20070101
  5. WELLBUTRIN [Concomitant]
     Dosage: UNK, UNKNOWN
     Route: 065
  6. KLONOPIN [Concomitant]
     Indication: SLEEP DISORDER
     Dosage: UNK, UNKNOWN
     Route: 065

REACTIONS (8)
  - ADVERSE DRUG REACTION [None]
  - DEPRESSION [None]
  - DISTURBANCE IN ATTENTION [None]
  - DRUG WITHDRAWAL SYNDROME [None]
  - FATIGUE [None]
  - FEELING ABNORMAL [None]
  - NIGHTMARE [None]
  - SUICIDAL IDEATION [None]
